FAERS Safety Report 5220312-1 (Version None)
Quarter: 2007Q1

REPORT INFORMATION
  Report Type: 
  Country: None (occurrence: None)
  Receive Date: 20061201
  Receipt Date: 20060714
  Transmission Date: 20070707
  Serious: No
  Sender: FDA-Public Use
  Company Number: 2006PV017610

PATIENT
  Age: 51 Year
  Sex: Male

DRUGS (2)
  1. BYETTA [Suspect]
     Indication: DIABETES MELLITUS NON-INSULIN-DEPENDENT
     Dosage: 5 MCG;BID;SC
     Route: 058
     Dates: start: 20060708
  2. GLUCOVANCE [Concomitant]

REACTIONS (5)
  - ENERGY INCREASED [None]
  - FEELING JITTERY [None]
  - MICTURITION FREQUENCY DECREASED [None]
  - NAUSEA [None]
  - WEIGHT DECREASED [None]
